FAERS Safety Report 25174195 (Version 3)
Quarter: 2025Q3

REPORT INFORMATION
  Report Type: Spontaneous
  Country: JP (occurrence: JP)
  Receive Date: 20250408
  Receipt Date: 20250810
  Transmission Date: 20251020
  Serious: Yes (Death, Hospitalization, Other)
  Sender: ALEXION PHARMACEUTICALS
  Company Number: JP-ASTRAZENECA-250032613_013120_P_1

PATIENT
  Age: 59 Year
  Sex: Male
  Weight: 58 kg

DRUGS (14)
  1. IMFINZI [Suspect]
     Active Substance: DURVALUMAB
     Indication: Bile duct cancer
     Dosage: 1500 MILLIGRAM, Q3W
  2. GEMCITABINE HYDROCHLORIDE [Concomitant]
     Active Substance: GEMCITABINE HYDROCHLORIDE
     Indication: Bile duct cancer
     Route: 065
  3. CISPLATIN [Concomitant]
     Active Substance: CISPLATIN
     Indication: Bile duct cancer
     Route: 065
  4. OXYCODONE [Concomitant]
     Active Substance: OXYCODONE
     Dosage: AFTER MORNING AND EVENING MEALS
  5. OXYCODONE [Concomitant]
     Active Substance: OXYCODONE
  6. OXYCODONE [Concomitant]
     Active Substance: OXYCODONE
  7. CELECOXIB [Concomitant]
     Active Substance: CELECOXIB
     Dosage: AFTER MORNING AND EVENING MEALS
  8. MAGNESIUM OXIDE [Concomitant]
     Active Substance: MAGNESIUM OXIDE
     Dosage: AFTER EACH MEAL
  9. MAGNESIUM OXIDE [Concomitant]
     Active Substance: MAGNESIUM OXIDE
     Dosage: AFTER EACH MEAL
     Dates: start: 20240828
  10. VONOPRAZAN FUMARATE [Concomitant]
     Active Substance: VONOPRAZAN FUMARATE
     Dosage: AFTER MORNING MEAL
  11. Clostridium butyricum [Concomitant]
     Dosage: AFTER EACH MEAL
  12. DEXAMETHASONE [Concomitant]
     Active Substance: DEXAMETHASONE
     Route: 065
  13. GRANISETRON [Concomitant]
     Active Substance: GRANISETRON
     Route: 065
  14. NALDEMEDINE TOSYLATE [Concomitant]
     Active Substance: NALDEMEDINE TOSYLATE
     Dates: start: 20240828

REACTIONS (4)
  - Hepatorenal syndrome [Fatal]
  - Immune-mediated enterocolitis [Unknown]
  - Cholangitis [Unknown]
  - Bacteraemia [Unknown]

NARRATIVE: CASE EVENT DATE: 20240101
